FAERS Safety Report 25823877 (Version 1)
Quarter: 2025Q3

REPORT INFORMATION
  Report Type: Spontaneous
  Country: US (occurrence: US)
  Receive Date: 20250919
  Receipt Date: 20250919
  Transmission Date: 20251021
  Serious: No
  Sender: ANI
  Company Number: US-ANIPHARMA-2025-US-023363

PATIENT
  Sex: Female

DRUGS (12)
  1. CORTICOTROPIN [Suspect]
     Active Substance: CORTICOTROPIN
     Indication: Punctate keratitis
     Route: 058
  2. FISH OIL [Concomitant]
     Active Substance: FISH OIL
  3. ASPIRIN [Concomitant]
     Active Substance: ASPIRIN
  4. FOLIC ACID [Concomitant]
     Active Substance: FOLIC ACID
  5. VITAMIN D3 [Concomitant]
     Active Substance: CHOLECALCIFEROL
  6. ROSUVASTATIN CALCIUM [Concomitant]
     Active Substance: ROSUVASTATIN CALCIUM
  7. B12 [Concomitant]
  8. LEVOTHYROXINE SODIUM [Concomitant]
     Active Substance: LEVOTHYROXINE SODIUM
  9. COREG [Concomitant]
     Active Substance: CARVEDILOL
  10. LISINOPRIL [Concomitant]
     Active Substance: LISINOPRIL
  11. RESTASIS [Concomitant]
     Active Substance: CYCLOSPORINE
  12. METFORMIN HYDROCHLORIDE [Concomitant]
     Active Substance: METFORMIN HYDROCHLORIDE

REACTIONS (3)
  - Blood glucose increased [Unknown]
  - Blood potassium increased [Unknown]
  - Glycosylated haemoglobin increased [Unknown]
